FAERS Safety Report 5416274-4 (Version None)
Quarter: 2007Q3

REPORT INFORMATION
  Report Type: 
  Country: None (occurrence: None)
  Receive Date: 20070718
  Receipt Date: 20070221
  Transmission Date: 20080115
  Serious: Yes (Hospitalization, Other)
  Sender: FDA-Public Use
  Company Number: 2007014345

PATIENT
  Age: 59 Year
  Sex: Female
  Weight: 85.7 kg

DRUGS (2)
  1. CELEBREX [Suspect]
     Indication: INFLAMMATION
     Dosage: 100 MG (100 MG, 1 IN 1 D)
  2. BEXTRA [Suspect]

REACTIONS (1)
  - MYOCARDIAL INFARCTION [None]
